FAERS Safety Report 19453594 (Version 3)
Quarter: 2022Q2

REPORT INFORMATION
  Report Type: Spontaneous
  Country: US (occurrence: US)
  Receive Date: 20210623
  Receipt Date: 20220429
  Transmission Date: 20220721
  Serious: No
  Sender: FDA-Public Use
  Company Number: US-PFIZER INC-2021524259

PATIENT
  Age: 73 Year
  Sex: Female

DRUGS (1)
  1. LYRICA [Suspect]
     Active Substance: PREGABALIN
     Indication: Diabetic neuropathy
     Dosage: UNK

REACTIONS (7)
  - Withdrawal syndrome [Unknown]
  - Blood pressure increased [Unknown]
  - Pain [Unknown]
  - Pain in extremity [Unknown]
  - Pain in extremity [Unknown]
  - Product dose omission issue [Unknown]
  - Pain [Unknown]
